FAERS Safety Report 4750209-2 (Version None)
Quarter: 2005Q3

REPORT INFORMATION
  Report Type: 
  Country: None (occurrence: None)
  Receive Date: 20050818
  Receipt Date: 20050808
  Transmission Date: 20060218
  Serious: Yes (Hospitalization)
  Sender: FDA-Public Use
  Company Number: 216618

PATIENT
  Age: 64 Year
  Sex: Female
  Weight: 66.7 kg

DRUGS (11)
  1. HERCEPTIN [Suspect]
     Indication: BREAST CANCER METASTATIC
     Dosage: SEE IMAGE
     Route: 042
     Dates: start: 20050429, end: 20050429
  2. HERCEPTIN [Suspect]
     Indication: BREAST CANCER METASTATIC
     Dosage: SEE IMAGE
     Route: 042
     Dates: start: 20050519
  3. XELODA [Suspect]
     Indication: DRUG USE FOR UNKNOWN INDICATION
     Dosage: 1500 MG, BID
     Dates: start: 20050407, end: 20050614
  4. ARIMIDEX [Concomitant]
  5. TAGAMET [Concomitant]
  6. ATENOLOL [Concomitant]
  7. ZOCOR [Concomitant]
  8. HYDROCHLOROTHIAZIDE [Concomitant]
  9. FOSAMAX [Concomitant]
  10. CALCIUM/VITAMIN D (CHOLECALCIFEROL, CALCIUM NOS) [Concomitant]
  11. NITRO TABS (NITROGLYCERIN) [Concomitant]

REACTIONS (2)
  - CATHETERISATION CARDIAC ABNORMAL [None]
  - CHEST PAIN [None]
